FAERS Safety Report 16310207 (Version 1)
Quarter: 2019Q2

REPORT INFORMATION
  Report Type: Spontaneous
  Country: US (occurrence: US)
  Receive Date: 20190513
  Receipt Date: 20190513
  Transmission Date: 20190711
  Serious: Yes (Other)
  Sender: FDA-Public Use
  Company Number: None

PATIENT
  Age: 30 Year
  Sex: Female
  Weight: 58.5 kg

DRUGS (6)
  1. PRO AIR, [Concomitant]
  2. CYMBALTA [Suspect]
     Active Substance: DULOXETINE HYDROCHLORIDE
     Indication: FIBROMYALGIA
     Dosage: ?          QUANTITY:1 CAPSULE(S);?
     Route: 048
  3. CYMBALTA [Suspect]
     Active Substance: DULOXETINE HYDROCHLORIDE
     Indication: DEPRESSION
     Dosage: ?          QUANTITY:1 CAPSULE(S);?
     Route: 048
  4. GABAPENTIN. [Concomitant]
     Active Substance: GABAPENTIN
  5. CYMBACORT [Concomitant]
  6. TIZANIDINE. [Concomitant]
     Active Substance: TIZANIDINE

REACTIONS (6)
  - Pain [None]
  - Anxiety [None]
  - Withdrawal syndrome [None]
  - Paranoia [None]
  - Nausea [None]
  - Feeling abnormal [None]

NARRATIVE: CASE EVENT DATE: 20190509
